FAERS Safety Report 18141981 (Version 1)
Quarter: 2020Q3

REPORT INFORMATION
  Report Type: Report from Study
  Country: PE (occurrence: PE)
  Receive Date: 20200812
  Receipt Date: 20200812
  Transmission Date: 20201103
  Serious: Yes (Hospitalization, Other)
  Sender: FDA-Public Use
  Company Number: NVSC2019PE065821

PATIENT
  Age: 59 Year
  Sex: Male
  Weight: 77 kg

DRUGS (3)
  1. AFINITOR [Suspect]
     Active Substance: EVEROLIMUS
     Indication: RENAL CANCER METASTATIC
     Dosage: 10 MG, QD
     Route: 048
     Dates: start: 20190628
  2. AFINITOR [Suspect]
     Active Substance: EVEROLIMUS
     Dosage: 10 MG, QD
     Route: 065
     Dates: start: 20190814
  3. AFINITOR [Suspect]
     Active Substance: EVEROLIMUS
     Dosage: 10 MG, QD
     Route: 065

REACTIONS (4)
  - Drug ineffective [Unknown]
  - Neoplasm malignant [Unknown]
  - Diarrhoea [Recovered/Resolved]
  - Second primary malignancy [Unknown]

NARRATIVE: CASE EVENT DATE: 20191206
